FAERS Safety Report 10553755 (Version 1)
Quarter: 2014Q4

REPORT INFORMATION
  Report Type: Spontaneous
  Country: US (occurrence: None)
  Receive Date: 20141028
  Receipt Date: 20141028
  Transmission Date: 20150529
  Serious: Yes (Death, Hospitalization)
  Sender: FDA-Public Use
  Company Number: IPC201410-000561

PATIENT
  Age: 62 Year
  Sex: Female

DRUGS (9)
  1. METOLAZONE (METOLAZONE) (METOLAZONE) [Suspect]
     Active Substance: METOLAZONE
  2. FUROSEMIDE (FUROSEMIDE) (FUROSEMIDE) [Suspect]
     Active Substance: FUROSEMIDE
  3. METHOTREXATE (METHOTREXATE) (METHOTREXATE) [Suspect]
     Active Substance: METHOTREXATE
  4. GLIPIZIDE. [Suspect]
     Active Substance: GLIPIZIDE
  5. IBUPROFEN. [Suspect]
     Active Substance: IBUPROFEN
  6. ESOMEPRAZOLE [Suspect]
     Active Substance: ESOMEPRAZOLE
  7. INSULIN [Suspect]
     Active Substance: INSULIN NOS
  8. ASPIRIN (ASPIRIN) (ASPIRIN) [Suspect]
     Active Substance: ASPIRIN
  9. SOLU-MEDROL [Suspect]
     Active Substance: METHYLPREDNISOLONE SODIUM SUCCINATE

REACTIONS (9)
  - Respiratory failure [None]
  - Renal tubular necrosis [None]
  - Skin erosion [None]
  - Drug interaction [None]
  - Hepatic enzyme increased [None]
  - Pancytopenia [None]
  - Psoriasis [None]
  - Toxicity to various agents [None]
  - Renal failure [None]
